FAERS Safety Report 9812992 (Version 2)
Quarter: 2014Q1

REPORT INFORMATION
  Report Type: Spontaneous
  Country: US (occurrence: US)
  Receive Date: 20140113
  Receipt Date: 20140113
  Transmission Date: 20141002
  Serious: Yes (Death, Disabling)
  Sender: FDA-Public Use
  Company Number: US-GE HEALTHCARE MEDICAL DIAGNOSTICS-OSCN-PR-0904S-0195

PATIENT
  Age: 49 Year
  Sex: Female

DRUGS (5)
  1. OMNISCAN [Suspect]
     Indication: PRODUCT USED FOR UNKNOWN INDICATION
     Dates: start: 19980403, end: 19980403
  2. OMNISCAN [Suspect]
     Dates: start: 19980417, end: 19980417
  3. OMNISCAN [Suspect]
     Dates: start: 19980422, end: 19980422
  4. OMNISCAN [Suspect]
     Dates: start: 20070406, end: 20070406
  5. MAGNEVIST [Suspect]
     Indication: PRODUCT USED FOR UNKNOWN INDICATION
     Dates: start: 20030214, end: 20030214

REACTIONS (1)
  - Nephrogenic systemic fibrosis [Fatal]
